FAERS Safety Report 25832578 (Version 1)
Quarter: 2025Q3

REPORT INFORMATION
  Report Type: Spontaneous
  Country: US (occurrence: US)
  Receive Date: 20250922
  Receipt Date: 20250922
  Transmission Date: 20251021
  Serious: No
  Sender: BAYER HEALTHCARE PHARMACEUTICALS INC.
  Company Number: US-BAYER-2025A124043

PATIENT
  Age: 26 Year
  Sex: Female

DRUGS (4)
  1. ACARBOSE [Suspect]
     Active Substance: ACARBOSE
     Indication: Postprandial hypoglycaemia
  2. DEXTROSE [Concomitant]
     Active Substance: DEXTROSE MONOHYDRATE
     Route: 048
  3. GLUCAGON [Concomitant]
     Active Substance: GLUCAGON
  4. OCTREOTIDE [Concomitant]
     Active Substance: OCTREOTIDE

REACTIONS (2)
  - Product use in unapproved indication [None]
  - Product prescribing issue [None]
